FAERS Safety Report 4492882-2 (Version None)
Quarter: 2004Q4

REPORT INFORMATION
  Report Type: 
  Country: None (occurrence: None)
  Receive Date: 20041029
  Receipt Date: 20021022
  Transmission Date: 20050328
  Serious: Yes (Other)
  Sender: FDA-Public Use
  Company Number: 2004237999DE

PATIENT
  Sex: Female

DRUGS (1)
  1. FRAGMIN [Suspect]
     Indication: THROMBOSIS PROPHYLAXIS
     Dosage: 5000 U, SUBCUTANEOUS
     Route: 058
     Dates: start: 20010606

REACTIONS (2)
  - POST PROCEDURAL COMPLICATION [None]
  - SPINAL HAEMATOMA [None]
